FAERS Safety Report 10178459 (Version 2)
Quarter: 2014Q2

REPORT INFORMATION
  Report Type: Spontaneous
  Country: US (occurrence: US)
  Receive Date: 20140519
  Receipt Date: 20140612
  Transmission Date: 20141212
  Serious: Yes (Hospitalization, Other)
  Sender: FDA-Public Use
  Company Number: US-JNJFOC-20140503044

PATIENT
  Sex: Female
  Weight: 94.35 kg

DRUGS (4)
  1. DURAGESIC [Suspect]
     Indication: SURGERY
     Route: 062
     Dates: end: 2011
  2. DURAGESIC [Suspect]
     Indication: SURGERY
     Dosage: 100UG/HR+50UG/HR
     Route: 062
  3. DURAGESIC [Suspect]
     Indication: SURGERY
     Route: 062
  4. DURAGESIC [Suspect]
     Indication: SURGERY
     Route: 062
     Dates: end: 2011

REACTIONS (5)
  - Convulsion [Not Recovered/Not Resolved]
  - Gitelman^s syndrome [Not Recovered/Not Resolved]
  - Drug dose omission [Unknown]
  - Blood oestrogen decreased [Unknown]
  - Product quality issue [Unknown]
